FAERS Safety Report 13461939 (Version 1)
Quarter: 2017Q2

REPORT INFORMATION
  Report Type: Spontaneous
  Country: US (occurrence: US)
  Receive Date: 20170420
  Receipt Date: 20170420
  Transmission Date: 20170830
  Serious: No
  Sender: FDA-Public Use
  Company Number: US-GLAXOSMITHKLINE-US2017055007

PATIENT
  Age: 73 Year
  Sex: Female

DRUGS (1)
  1. NICODERM CQ [Suspect]
     Active Substance: NICOTINE
     Indication: SMOKING CESSATION THERAPY
     Dosage: 21 MG, UNK
     Dates: start: 20170405, end: 20170412

REACTIONS (9)
  - Application site pruritus [Unknown]
  - Application site discolouration [Not Recovered/Not Resolved]
  - Application site erythema [Unknown]
  - Application site rash [Not Recovered/Not Resolved]
  - Hypersensitivity [Not Recovered/Not Resolved]
  - Product quality issue [Unknown]
  - Skin discolouration [Unknown]
  - Application site hyperaesthesia [Unknown]
  - Application site swelling [Unknown]
